FAERS Safety Report 13224859 (Version 1)
Quarter: 2017Q1

REPORT INFORMATION
  Report Type: Spontaneous
  Country: US (occurrence: US)
  Receive Date: 20170213
  Receipt Date: 20170213
  Transmission Date: 20170428
  Serious: No
  Sender: FDA-Public Use
  Company Number: US-TEVA-729073ACC

PATIENT
  Sex: Female
  Weight: 58.11 kg

DRUGS (1)
  1. CLONIDINE TDS [Suspect]
     Active Substance: CLONIDINE
     Indication: BLOOD PRESSURE MEASUREMENT
     Dates: start: 201610

REACTIONS (2)
  - Heart rate decreased [Unknown]
  - Blood pressure diastolic decreased [Unknown]
